FAERS Safety Report 6396047-9 (Version None)
Quarter: 2009Q4

REPORT INFORMATION
  Report Type: 
  Country: None (occurrence: None)
  Receive Date: 20091009
  Receipt Date: 20090928
  Transmission Date: 20100525
  Serious: Yes (Hospitalization, Other)
  Sender: FDA-Public Use
  Company Number: BR-MEDIMMUNE-MEDI-0009021

PATIENT
  Sex: Female

DRUGS (2)
  1. SYNAGIS [Suspect]
     Dates: start: 20090430
  2. PROPRANOLOL [Concomitant]

REACTIONS (1)
  - BRAIN ABSCESS [None]
